FAERS Safety Report 17555237 (Version 1)
Quarter: 2020Q1

REPORT INFORMATION
  Report Type: Spontaneous
  Country: GB (occurrence: GB)
  Receive Date: 20200318
  Receipt Date: 20200318
  Transmission Date: 20200409
  Serious: Yes (Hospitalization, Disabling, Other)
  Sender: FDA-Public Use
  Company Number: GB-009507513-2003GBR004605

PATIENT
  Sex: Male

DRUGS (5)
  1. SINEMET PLUS [Suspect]
     Active Substance: CARBIDOPA\LEVODOPA
     Dosage: ONE TABLET IN THE EVENING
     Route: 048
  2. SINEMET PLUS 25 MG/100 MG TABLETS [Suspect]
     Active Substance: CARBIDOPA\LEVODOPA
     Dosage: 7 TABLETS DAILY
     Route: 048
  3. SINEMET PLUS [Suspect]
     Active Substance: CARBIDOPA\LEVODOPA
     Indication: PARKINSON^S DISEASE
     Dosage: UNK
     Route: 048
  4. CARBIDOPA (+) LEVODOPA [Concomitant]
     Active Substance: CARBIDOPA\LEVODOPA
     Indication: PARKINSON^S DISEASE
     Dosage: UNK
  5. SINEMET PLUS 25 MG/100 MG TABLETS [Suspect]
     Active Substance: CARBIDOPA\LEVODOPA
     Indication: PARKINSON^S DISEASE
     Dosage: UNK
     Route: 048

REACTIONS (4)
  - Parkinson^s disease [Unknown]
  - Loss of personal independence in daily activities [Unknown]
  - Parkinson^s disease [Unknown]
  - Loss of personal independence in daily activities [Unknown]

NARRATIVE: CASE EVENT DATE: 2018
